FAERS Safety Report 5894046-4 (Version None)
Quarter: 2008Q3

REPORT INFORMATION
  Report Type: 
  Country: None (occurrence: None)
  Receive Date: 20080923
  Receipt Date: 20080915
  Transmission Date: 20090109
  Serious: Yes (Hospitalization, Other)
  Sender: FDA-Public Use
  Company Number: US-ELI_LILLY_AND_COMPANY-US200808004344

PATIENT
  Sex: Female

DRUGS (16)
  1. BYETTA [Suspect]
     Dosage: 10 UG, 2/D
     Route: 058
  2. GLUCOSAMINE COMPLEX [Concomitant]
     Dosage: UNK, EACH EVENING
     Route: 065
  3. GLIPIZIDE [Concomitant]
     Dosage: 5 MBQ, EACH EVENING
     Route: 065
  4. GLUCOPHAGE [Concomitant]
     Dosage: 1000 MG, 2/D
     Route: 065
  5. STARLIX [Concomitant]
     Dosage: 120 MG, 3/D
     Route: 065
  6. SYNTHROID [Concomitant]
     Dosage: 100 UG, DAILY (1/D)
     Route: 065
  7. CELEBREX [Concomitant]
     Dosage: 200 MG, EACH MORNING
     Route: 065
  8. ACIPHEX [Concomitant]
     Dosage: 20 MG, DAILY (1/D)
     Route: 065
  9. SERZONE [Concomitant]
     Dosage: 200 MG, EACH MORNING
     Route: 065
  10. EVISTA [Concomitant]
     Dosage: 60 MG, DAILY (1/D)
     Route: 065
  11. CRESTOR [Concomitant]
     Dosage: 10 MG, EACH EVENING
     Route: 065
  12. ZETIA [Concomitant]
     Dosage: 10 MG, EACH EVENING
     Route: 065
  13. MICARDIS [Concomitant]
     Dosage: UNK, EACH MORNING
     Route: 065
  14. VITAMIN D [Concomitant]
     Dosage: 50000 IU, MONTHLY (1/M)
     Route: 065
  15. ASPIRIN [Concomitant]
     Dosage: 325 MG, EACH EVENING
     Route: 065
  16. CALCIUM CARBIMIDE [Concomitant]
     Dosage: 1000 MG, EACH EVENING
     Route: 065

REACTIONS (2)
  - HELICOBACTER INFECTION [None]
  - PANCREATITIS [None]
